FAERS Safety Report 6760539-0 (Version None)
Quarter: 2010Q2

REPORT INFORMATION
  Report Type: 
  Country: None (occurrence: None)
  Receive Date: 20100607
  Receipt Date: 20100607
  Transmission Date: 20101027
  Serious: Yes (Other)
  Sender: FDA-Public Use
  Company Number: None

PATIENT
  Age: 6 Year
  Weight: 16.9192 kg

DRUGS (5)
  1. RISPERIDONE [Suspect]
     Indication: AGGRESSION
     Dosage: 0.25 MG BID
     Dates: start: 20090101, end: 20090401
  2. RISPERIDONE [Suspect]
     Indication: AUTISM
     Dosage: 0.25 MG BID
     Dates: start: 20090101, end: 20090401
  3. RISPERIDONE [Suspect]
     Indication: INTENTIONAL SELF-INJURY
     Dosage: 0.25 MG BID
     Dates: start: 20090101, end: 20090401
  4. RISPERIDONE [Suspect]
     Indication: MENTAL RETARDATION
     Dosage: 0.25 MG BID
     Dates: start: 20090101, end: 20090401
  5. VITAMIN TAB [Concomitant]

REACTIONS (4)
  - DISTURBANCE IN ATTENTION [None]
  - PRODUCT SUBSTITUTION ISSUE [None]
  - TONGUE BITING [None]
  - TREMOR [None]
